FAERS Safety Report 7708732-4 (Version None)
Quarter: 2011Q3

REPORT INFORMATION
  Report Type: 
  Country: None (occurrence: None)
  Receive Date: 20110825
  Receipt Date: 20110825
  Transmission Date: 20111222
  Serious: Yes (Other)
  Sender: FDA-Public Use
  Company Number: None

PATIENT
  Sex: Female

DRUGS (3)
  1. LEXAPRO [Concomitant]
  2. GEODON [Suspect]
     Indication: BIPOLAR DISORDER
     Dosage: ONCE A DAY
     Route: 048
  3. GEODON [Suspect]
     Indication: AGITATION
     Dosage: ONCE A DAY
     Route: 048

REACTIONS (5)
  - JUDGEMENT IMPAIRED [None]
  - FEAR [None]
  - ROAD TRAFFIC ACCIDENT [None]
  - AMNESIA [None]
  - ANXIETY [None]
